FAERS Safety Report 10581282 (Version 1)
Quarter: 2014Q4

REPORT INFORMATION
  Report Type: Spontaneous
  Country: US (occurrence: None)
  Receive Date: 20141110
  Receipt Date: 20141110
  Transmission Date: 20150529
  Serious: Yes (Other)
  Sender: FDA-Public Use
  Company Number: 2014COR00107

PATIENT

DRUGS (4)
  1. CYPROHEPTADINE HCL [Suspect]
     Active Substance: CYPROHEPTADINE HYDROCHLORIDE
     Indication: HEADACHE
  2. MIDODRINE [Suspect]
     Active Substance: MIDODRINE
     Indication: AUTONOMIC NERVOUS SYSTEM IMBALANCE
  3. CELEXA [Suspect]
     Active Substance: CITALOPRAM HYDROBROMIDE
     Indication: DEPRESSION
  4. LEVETIRACETAM. [Suspect]
     Active Substance: LEVETIRACETAM
     Indication: EPILEPSY

REACTIONS (11)
  - Arthralgia [None]
  - Papule [None]
  - Back pain [None]
  - Dyspnoea [None]
  - Dark circles under eyes [None]
  - Appetite disorder [None]
  - Off label use [None]
  - Fatigue [None]
  - Condition aggravated [None]
  - Erythema [None]
  - Thirst [None]
